FAERS Safety Report 8362862-5 (Version None)
Quarter: 2012Q2

REPORT INFORMATION
  Report Type: 
  Country: None (occurrence: None)
  Receive Date: 20120516
  Receipt Date: 20120503
  Transmission Date: 20120825
  Serious: Yes (Other)
  Sender: FDA-Public Use
  Company Number: US-BAYER-2012-043493

PATIENT
  Age: 72 Year
  Sex: Female
  Weight: 68.027 kg

DRUGS (6)
  1. SOTALOL HCL [Suspect]
  2. CARDIZEM [Concomitant]
     Dosage: 120 MG, QD
  3. COREG [Concomitant]
     Dosage: 25 MG, QD
  4. DABIGATRAN [Concomitant]
     Dosage: 150 MG, QD
  5. ASPIRIN [Concomitant]
     Dosage: 324 MG, QD
  6. DIGOXIN [Concomitant]
     Dosage: 125 ?G, QD

REACTIONS (4)
  - DRUG INEFFECTIVE [None]
  - CARDIAC FAILURE CONGESTIVE [None]
  - ARRHYTHMIA [None]
  - ANXIETY [None]
